FAERS Safety Report 4687816-1 (Version None)
Quarter: 2005Q2

REPORT INFORMATION
  Report Type: 
  Country: None (occurrence: None)
  Receive Date: 20050610
  Receipt Date: 20050531
  Transmission Date: 20051028
  Serious: Yes (Death)
  Sender: FDA-Public Use
  Company Number: US-JNJFOC-20050601812

PATIENT
  Age: 85 Year
  Sex: Male
  Weight: 58.97 kg

DRUGS (1)
  1. MYLANTA CLASSIC [Suspect]

REACTIONS (2)
  - DEATH [None]
  - VOMITING [None]
